FAERS Safety Report 7339080-2 (Version None)
Quarter: 2011Q1

REPORT INFORMATION
  Report Type: 
  Country: None (occurrence: None)
  Receive Date: 20110228
  Receipt Date: 20110216
  Transmission Date: 20110831
  Serious: Yes (Hospitalization)
  Sender: FDA-Public Use
  Company Number: MPS1-1000453

PATIENT
  Age: 7 Year
  Sex: Male

DRUGS (2)
  1. ALDURAZYME [Suspect]
     Indication: MUCOPOLYSACCHARIDOSIS I
     Dosage: 8.7 MG, QW, INTRAVENOUS; 8.7 MG, QW, INTRAVENOUS
     Route: 042
     Dates: start: 20110211
  2. ALDURAZYME [Suspect]
     Indication: MUCOPOLYSACCHARIDOSIS I
     Dosage: 8.7 MG, QW, INTRAVENOUS; 8.7 MG, QW, INTRAVENOUS
     Route: 042
     Dates: start: 20040309, end: 20110101

REACTIONS (12)
  - ASTHMA [None]
  - INFLUENZA [None]
  - COUGH [None]
  - SEPSIS [None]
  - COAGULATION TIME PROLONGED [None]
  - TRACHEOSTOMY [None]
  - DEVICE RELATED INFECTION [None]
  - STAPHYLOCOCCAL INFECTION [None]
  - LUNG DISORDER [None]
  - TRACHEITIS [None]
  - PNEUMONIA [None]
  - ANAEMIA [None]
